FAERS Safety Report 7802357-8 (Version None)
Quarter: 2011Q4

REPORT INFORMATION
  Report Type: 
  Country: None (occurrence: None)
  Receive Date: 20111007
  Receipt Date: 20110930
  Transmission Date: 20120403
  Serious: Yes (Other)
  Sender: FDA-Public Use
  Company Number: US-PURDUE-USA-2011-0075307

PATIENT
  Age: 41 Year
  Sex: Female

DRUGS (2)
  1. HYDROMORPHONE HCL [Suspect]
     Indication: PAIN
     Dosage: 4 MG, Q6H
  2. FENTANYL [Suspect]
     Indication: PAIN
     Dosage: 75 MCG, UNK
     Route: 062

REACTIONS (2)
  - SUICIDAL IDEATION [None]
  - PAIN [None]
